FAERS Safety Report 5955155-4 (Version None)
Quarter: 2008Q4

REPORT INFORMATION
  Report Type: 
  Country: None (occurrence: None)
  Receive Date: 20081117
  Receipt Date: 20071113
  Transmission Date: 20090506
  Serious: Yes (Other)
  Sender: FDA-Public Use
  Company Number: US-AMGEN-QUU244381

PATIENT
  Sex: Female

DRUGS (9)
  1. ENBREL [Suspect]
     Indication: RHEUMATOID ARTHRITIS
     Route: 058
     Dates: start: 20010101
  2. SYNTHROID [Concomitant]
  3. RELAFEN [Concomitant]
  4. BETOPTIC [Concomitant]
  5. PLAQUENIL [Concomitant]
  6. ACIPHEX [Concomitant]
  7. LOTREL [Concomitant]
  8. LOVASTATIN [Concomitant]
  9. MULTIVITAMIN [Concomitant]

REACTIONS (1)
  - TONGUE NEOPLASM MALIGNANT STAGE UNSPECIFIED [None]
